FAERS Safety Report 5346057-5 (Version None)
Quarter: 2007Q2

REPORT INFORMATION
  Report Type: 
  Country: None (occurrence: None)
  Receive Date: 20070605
  Receipt Date: 20070531
  Transmission Date: 20071010
  Serious: Yes (Hospitalization)
  Sender: FDA-Public Use
  Company Number: FR-MERCK-0705FRA00065

PATIENT
  Age: 83 Year
  Sex: Male

DRUGS (7)
  1. COSOPT [Suspect]
     Indication: GLAUCOMA
     Route: 047
     Dates: end: 20070327
  2. ROSUVASTATIN CALCIUM [Suspect]
     Indication: HYPERCHOLESTEROLAEMIA
     Route: 048
     Dates: start: 20061001, end: 20070327
  3. BISOPROLOL FUMARATE [Suspect]
     Route: 048
     Dates: start: 20060803, end: 20070327
  4. AMIODARONE HCL [Suspect]
     Route: 048
     Dates: start: 20040701, end: 20070327
  5. RAMIPRIL [Suspect]
     Route: 048
     Dates: start: 20061001, end: 20070327
  6. OMEPRAZOLE [Concomitant]
     Route: 048
  7. FLUINDIONE [Concomitant]
     Indication: PROPHYLAXIS
     Route: 048

REACTIONS (2)
  - ALVEOLITIS [None]
  - INTERSTITIAL LUNG DISEASE [None]
